FAERS Safety Report 24620586 (Version 2)
Quarter: 2024Q4

REPORT INFORMATION
  Report Type: Report from Study
  Country: GT (occurrence: GT)
  Receive Date: 20241114
  Receipt Date: 20241223
  Transmission Date: 20250114
  Serious: Yes (Other)
  Sender: EMD SERONO INC
  Company Number: GT-Merck Healthcare KGaA-2024059539

PATIENT
  Age: 61 Year
  Sex: Female

DRUGS (1)
  1. REBIF [Suspect]
     Active Substance: INTERFERON BETA-1A
     Indication: Multiple sclerosis
     Dates: start: 20211001

REACTIONS (6)
  - Immunodeficiency [Recovered/Resolved]
  - Mental impairment [Recovered/Resolved]
  - Gait inability [Recovered/Resolved]
  - Impaired reasoning [Recovered/Resolved]
  - Product administration interrupted [Recovered/Resolved]
  - Product availability issue [Recovered/Resolved]

NARRATIVE: CASE EVENT DATE: 20241028
